FAERS Safety Report 23872042 (Version 1)
Quarter: 2024Q2

REPORT INFORMATION
  Report Type: Spontaneous
  Country: CA (occurrence: CA)
  Receive Date: 20240520
  Receipt Date: 20240520
  Transmission Date: 20240716
  Serious: Yes (Other)
  Sender: FDA-Public Use
  Company Number: CA-ABBVIE-5766441

PATIENT
  Age: 48 Year
  Sex: Female
  Weight: 77 kg

DRUGS (6)
  1. MESALAMINE [Suspect]
     Active Substance: MESALAMINE
     Indication: Product used for unknown indication
     Dosage: FORM STRENGTH: 2G SUSPENSION
     Route: 065
     Dates: start: 202401
  2. INFLIXIMAB [Concomitant]
     Active Substance: INFLIXIMAB
     Indication: Colitis ulcerative
     Dosage: FREQUENCY TEXT:  WEEK 0, 2, 6 EVERY 8 WEEKS
     Route: 042
     Dates: start: 20240325
  3. INFLIXIMAB [Concomitant]
     Active Substance: INFLIXIMAB
     Indication: Colitis ulcerative
     Dosage: FREQUENCY TEXT: WEEK 0,2, 6, EVERY 8 WEEK
     Route: 042
     Dates: start: 20230824, end: 2023
  4. INFLIXIMAB [Concomitant]
     Active Substance: INFLIXIMAB
     Indication: Colitis ulcerative
     Dosage: FREQUENCY TEXT: WEEK 0,2, 6, EVERY 8 WEEK
     Route: 042
     Dates: start: 20231130, end: 2023
  5. INFLIXIMAB [Concomitant]
     Active Substance: INFLIXIMAB
     Indication: Colitis ulcerative
     Dosage: FREQUENCY TEXT: WEEK 0,2, 6, EVERY 8 WEEK
     Route: 042
     Dates: start: 20240130, end: 2024
  6. INFLIXIMAB [Concomitant]
     Active Substance: INFLIXIMAB
     Indication: Colitis ulcerative
     Dosage: FREQUENCY TEXT: WEEK 6
     Route: 042
     Dates: start: 20231005, end: 20231005

REACTIONS (5)
  - Malignant melanoma [Recovering/Resolving]
  - Rectal haemorrhage [Unknown]
  - Condition aggravated [Unknown]
  - Night sweats [Unknown]
  - Back pain [Unknown]

NARRATIVE: CASE EVENT DATE: 20240130
